FAERS Safety Report 4760253-7 (Version None)
Quarter: 2005Q3

REPORT INFORMATION
  Report Type: 
  Country: None (occurrence: None)
  Receive Date: 20050831
  Receipt Date: 20050812
  Transmission Date: 20060218
  Serious: Yes (Other)
  Sender: FDA-Public Use
  Company Number: USA0508104320

PATIENT
  Age: 62 Year
  Sex: Female
  Weight: 62 kg

DRUGS (2)
  1. FORTEO [Suspect]
     Indication: OSTEOPOROSIS
     Dosage: 20 UG DAY
     Dates: start: 20040701, end: 20050801
  2. TAMOXIFEN CITRATE [Concomitant]

REACTIONS (2)
  - ENDOMETRIAL CANCER [None]
  - ENDOMETRIAL METAPLASIA [None]
